FAERS Safety Report 20020429 (Version 2)
Quarter: 2024Q3

REPORT INFORMATION
  Report Type: Report from Study
  Country: US (occurrence: US)
  Receive Date: 20211101
  Receipt Date: 20240827
  Transmission Date: 20241017
  Serious: Yes (Other)
  Sender: TAKEDA
  Company Number: US-TAKEDA-2021TUS000844

PATIENT
  Age: 31 Year
  Sex: Female

DRUGS (6)
  1. LANADELUMAB [Suspect]
     Active Substance: LANADELUMAB
     Indication: Immune system disorder
     Dosage: 300 MILLIGRAM, Q2WEEKS
     Route: 050
     Dates: start: 20210104
  2. LANADELUMAB [Suspect]
     Active Substance: LANADELUMAB
     Dosage: 300 MILLIGRAM
     Route: 058
     Dates: start: 20210104, end: 20210215
  3. FIRAZYR [Suspect]
     Active Substance: ICATIBANT ACETATE
     Indication: Product used for unknown indication
     Dosage: 30 MILLIGRAM
     Route: 058
  4. FIRAZYR [Suspect]
     Active Substance: ICATIBANT ACETATE
     Indication: Product used for unknown indication
     Dosage: 30 MILLIGRAM
     Route: 058
  5. FIRAZYR [Suspect]
     Active Substance: ICATIBANT ACETATE
     Dosage: 30 MILLIGRAM
     Route: 058
     Dates: start: 2021
  6. FIRAZYR [Suspect]
     Active Substance: ICATIBANT ACETATE
     Dosage: 30 MILLIGRAM
     Route: 058
     Dates: start: 2021

REACTIONS (17)
  - Rash macular [Recovered/Resolved]
  - Abdominal pain upper [Unknown]
  - Pruritus [Recovered/Resolved]
  - Abnormal dreams [Unknown]
  - Asthenia [Unknown]
  - Nausea [Unknown]
  - Blood pressure increased [Unknown]
  - Muscle tightness [Unknown]
  - Palpitations [Unknown]
  - Chest pain [Unknown]
  - Hereditary angioedema [Recovered/Resolved]
  - Dizziness [Unknown]
  - Injection site reaction [Recovered/Resolved]
  - Injection site pain [Recovered/Resolved]
  - Fatigue [Unknown]
  - Loss of personal independence in daily activities [Unknown]
  - Urticaria [Unknown]

NARRATIVE: CASE EVENT DATE: 20210104
